FAERS Safety Report 23425266 (Version 1)
Quarter: 2024Q1

REPORT INFORMATION
  Report Type: Spontaneous
  Country: US (occurrence: US)
  Receive Date: 20240121
  Receipt Date: 20240121
  Transmission Date: 20240409
  Serious: No
  Sender: FDA-Public Use
  Company Number: US-TARO PHARMACEUTICALS USA INC.-2023TAR00574

PATIENT
  Sex: Female
  Weight: 74.8 kg

DRUGS (1)
  1. CLOTRIMAZOLE [Suspect]
     Active Substance: CLOTRIMAZOLE
     Indication: Vulvovaginal pruritus
     Dosage: UNK, HALF AN INCH, TO EXTERNAL VAGINAL AREA
     Route: 061

REACTIONS (3)
  - Disease recurrence [Not Recovered/Not Resolved]
  - Intentional underdose [Unknown]
  - Off label use [Unknown]
